FAERS Safety Report 13755103 (Version 5)
Quarter: 2018Q4

REPORT INFORMATION
  Report Type: Report from Study
  Country: US (occurrence: US)
  Receive Date: 20170714
  Receipt Date: 20181025
  Transmission Date: 20190204
  Serious: No
  Sender: FDA-Public Use
  Company Number: US-CIPLA LTD.-2017US12094

PATIENT

DRUGS (4)
  1. CELECOXIB. [Suspect]
     Active Substance: CELECOXIB
     Indication: NEOPLASM OF THYMUS
     Dosage: 200 MG, BID, DAY 1 TO DAY 14 ON 21 DAY CYCLE
     Route: 048
  2. CAPECITABINE. [Interacting]
     Active Substance: CAPECITABINE
     Indication: NEOPLASM OF THYMUS
     Dosage: 1000 MG/M2, BID, DAY 1 TO DAY 14 ON A 21 DAY CYCLE
     Route: 048
  3. CAPECITABINE. [Interacting]
     Active Substance: CAPECITABINE
     Indication: MALIGNANT NEOPLASM PROGRESSION
     Dosage: 750 MG/M2, TWICE DAILY (ROUNDED TO THE NEAREST 500 MG)
     Route: 048
  4. CELECOXIB. [Interacting]
     Active Substance: CELECOXIB
     Indication: MALIGNANT NEOPLASM PROGRESSION

REACTIONS (1)
  - Drug interaction [Unknown]
